FAERS Safety Report 25093885 (Version 1)
Quarter: 2025Q1

REPORT INFORMATION
  Report Type: Spontaneous
  Country: GB (occurrence: GB)
  Receive Date: 20250319
  Receipt Date: 20250319
  Transmission Date: 20250409
  Serious: Yes (Hospitalization)
  Sender: MYLAN
  Company Number: GB-MYLANLABS-2025M1021377

PATIENT
  Age: 37 Year
  Sex: Male

DRUGS (3)
  1. ALLOPURINOL [Suspect]
     Active Substance: ALLOPURINOL
     Indication: Gouty tophus
  2. ALLOPURINOL [Suspect]
     Active Substance: ALLOPURINOL
  3. PREDNISOLONE [Suspect]
     Active Substance: PREDNISOLONE
     Indication: Gout

REACTIONS (1)
  - Drug ineffective [Unknown]
